FAERS Safety Report 7265190-4 (Version None)
Quarter: 2011Q1

REPORT INFORMATION
  Report Type: 
  Country: None (occurrence: None)
  Receive Date: 20110131
  Receipt Date: 20110124
  Transmission Date: 20110831
  Serious: Yes (Other)
  Sender: FDA-Public Use
  Company Number: CA-AMGEN-KDL443201

PATIENT
  Age: 38 Year
  Sex: Male
  Weight: 116 kg

DRUGS (5)
  1. ENBREL [Suspect]
     Indication: ANKYLOSING SPONDYLITIS
     Dosage: 50 MG, QWK
     Route: 058
     Dates: start: 20100628, end: 20101002
  2. METHOTREXATE [Concomitant]
     Dosage: 15 MG, QWK
  3. IBUPROFEN [Concomitant]
     Dosage: 600 MG, QID
  4. ENBREL [Suspect]
     Dosage: 50 MG, QWK
     Dates: start: 20100601, end: 20100901
  5. FOLIC ACID [Concomitant]
     Dosage: 5 MG, QWK

REACTIONS (3)
  - PARAESTHESIA [None]
  - HYPOAESTHESIA FACIAL [None]
  - HYPOAESTHESIA [None]
